FAERS Safety Report 23330794 (Version 1)
Quarter: 2023Q4

REPORT INFORMATION
  Report Type: Spontaneous
  Country: US (occurrence: US)
  Receive Date: 20231222
  Receipt Date: 20231222
  Transmission Date: 20240110
  Serious: Yes (Other)
  Sender: FDA-Public Use
  Company Number: US-MYLANLABS-2023M1136095

PATIENT
  Sex: Female
  Weight: 83.46 kg

DRUGS (3)
  1. NEURONTIN [Suspect]
     Active Substance: GABAPENTIN
     Indication: Complex regional pain syndrome
     Dosage: 600 MILLIGRAM, 3X, Q8H (EVERY 8 HOURS)
     Route: 065
     Dates: start: 2003
  2. NEURONTIN [Suspect]
     Active Substance: GABAPENTIN
     Indication: Complex regional pain syndrome
  3. OXYCODONE [Concomitant]
     Active Substance: OXYCODONE
     Indication: Pain
     Dosage: UNK
     Route: 065

REACTIONS (5)
  - Seizure like phenomena [Unknown]
  - Drug ineffective [Unknown]
  - Product taste abnormal [Unknown]
  - Illness [Unknown]
  - Nausea [Unknown]
